FAERS Safety Report 5115695-7 (Version None)
Quarter: 2006Q3

REPORT INFORMATION
  Report Type: 
  Country: None (occurrence: None)
  Receive Date: 20060926
  Receipt Date: 20060926
  Transmission Date: 20061208
  Serious: Yes (Other)
  Sender: FDA-Public Use
  Company Number: None

PATIENT

DRUGS (3)
  1. GEODON [Suspect]
     Indication: BIPOLAR DISORDER
     Dosage: 80 MG /DAY
     Dates: start: 20051219, end: 20060510
  2. DEPAKOTE [Suspect]
     Indication: BIPOLAR DISORDER
     Dosage: 1250 -1750 MG /DAY
     Dates: start: 20060207
  3. ATIVAN [Concomitant]

REACTIONS (6)
  - COGWHEEL RIGIDITY [None]
  - DRUG INEFFECTIVE [None]
  - SALIVARY HYPERSECRETION [None]
  - SEDATION [None]
  - STUPOR [None]
  - TREMOR [None]
